FAERS Safety Report 12124556 (Version 2)
Quarter: 2016Q2

REPORT INFORMATION
  Report Type: Spontaneous
  Country: US (occurrence: US)
  Receive Date: 20160229
  Receipt Date: 20160414
  Transmission Date: 20160815
  Serious: No
  Sender: FDA-Public Use
  Company Number: US-009507513-1602USA012489

PATIENT
  Age: 44 Year
  Sex: Female
  Weight: 63.49 kg

DRUGS (1)
  1. NEXPLANON [Suspect]
     Active Substance: ETONOGESTREL
     Indication: CONTRACEPTION
     Dosage: 1 DF, UP TO 3 YEARS
     Route: 059
     Dates: start: 20131121

REACTIONS (4)
  - Amenorrhoea [Recovered/Resolved]
  - Vaginal haemorrhage [Unknown]
  - Muscle spasms [Unknown]
  - Emotional disorder [Unknown]

NARRATIVE: CASE EVENT DATE: 20131121
